FAERS Safety Report 15058423 (Version 1)
Quarter: 2018Q2

REPORT INFORMATION
  Report Type: Other
  Country: JP (occurrence: JP)
  Receive Date: 20180625
  Receipt Date: 20180625
  Transmission Date: 20180711
  Serious: Yes (Hospitalization, Other)
  Sender: FDA-Public Use
  Company Number: JP-DENTSPLY-2018SCDP000241

PATIENT
  Age: 41 Year
  Sex: Male
  Weight: 52.5 kg

DRUGS (3)
  1. TANNIC ACID [Suspect]
     Active Substance: TANNIC ACID
     Indication: HAEMORRHOIDS
     Dosage: UNK
  2. ALUMINIUM POTASSIUM SULFATE [Suspect]
     Active Substance: POTASSIUM ALUM ANHYDROUS
     Indication: HAEMORRHOIDS
     Dosage: UNK
  3. LIDOCAINE HCL [Suspect]
     Active Substance: LIDOCAINE HYDROCHLORIDE
     Indication: HAEMORRHOIDS
     Dosage: UNK

REACTIONS (1)
  - Drug-induced liver injury [None]
